FAERS Safety Report 6632784-6 (Version None)
Quarter: 2010Q1

REPORT INFORMATION
  Report Type: 
  Country: None (occurrence: None)
  Receive Date: 20100312
  Receipt Date: 20100204
  Transmission Date: 20100710
  Serious: No
  Sender: FDA-Public Use
  Company Number: US-BIOGENIDEC-2010BI003902

PATIENT
  Sex: Female

DRUGS (2)
  1. AVONEX [Suspect]
     Indication: MULTIPLE SCLEROSIS
     Route: 030
     Dates: start: 20010401, end: 20020601
  2. AVONEX [Suspect]
     Route: 030
     Dates: start: 20040601

REACTIONS (5)
  - CRYING [None]
  - INJECTION SITE PAIN [None]
  - NEURALGIA [None]
  - PANIC ATTACK [None]
  - PARAESTHESIA [None]
